FAERS Safety Report 21868306 (Version 5)
Quarter: 2023Q2

REPORT INFORMATION
  Report Type: Spontaneous
  Country: JP (occurrence: JP)
  Receive Date: 20230116
  Receipt Date: 20230618
  Transmission Date: 20230721
  Serious: Yes (Hospitalization)
  Sender: FDA-Public Use
  Company Number: JP-ABBVIE-4272053

PATIENT
  Age: 70 Year
  Sex: Male

DRUGS (5)
  1. VENCLEXTA [Suspect]
     Active Substance: VENETOCLAX
     Indication: Acute myeloid leukaemia
     Dosage: STRENGTH: 100 MG?200 MILLIGRAM
     Route: 048
     Dates: start: 20221226, end: 20230110
  2. VENCLEXTA [Suspect]
     Active Substance: VENETOCLAX
     Indication: Acute myeloid leukaemia
     Dosage: STRENGTH-100 MG
     Route: 048
     Dates: start: 2023
  3. VIDAZA [Suspect]
     Active Substance: AZACITIDINE
     Indication: Acute myeloid leukaemia
     Route: 058
     Dates: start: 20221226, end: 20230110
  4. POLAPREZINC [Concomitant]
     Active Substance: POLAPREZINC
     Indication: Product used for unknown indication
     Route: 048
  5. FLUCONAZOLE [Concomitant]
     Active Substance: FLUCONAZOLE
     Indication: Product used for unknown indication
     Route: 048

REACTIONS (4)
  - Hepatic function abnormal [Recovering/Resolving]
  - Blood bilirubin abnormal [Unknown]
  - Alanine aminotransferase increased [Unknown]
  - Aspartate aminotransferase abnormal [Unknown]

NARRATIVE: CASE EVENT DATE: 20230101
